FAERS Safety Report 9030851 (Version 3)
Quarter: 2013Q1

REPORT INFORMATION
  Report Type: Spontaneous
  Country: JP (occurrence: JP)
  Receive Date: 20130123
  Receipt Date: 20130320
  Transmission Date: 20140127
  Serious: Yes (Hospitalization)
  Sender: FDA-Public Use
  Company Number: JP-ROCHE-1181659

PATIENT
  Age: 64 Year
  Sex: Male

DRUGS (2)
  1. LUCENTIS [Suspect]
     Indication: POLYPOIDAL CHOROIDAL VASCULOPATHY
     Route: 042
  2. LUCENTIS [Suspect]
     Indication: OFF LABEL USE

REACTIONS (2)
  - Retinal haemorrhage [Unknown]
  - Vitreous haemorrhage [Unknown]
